FAERS Safety Report 9732768 (Version 1)
Quarter: 2013Q4

REPORT INFORMATION
  Report Type: Spontaneous
  Country: DE (occurrence: DE)
  Receive Date: 20131204
  Receipt Date: 20131204
  Transmission Date: 20140711
  Serious: Yes (Hospitalization)
  Sender: FDA-Public Use
  Company Number: DE-GLAXOSMITHKLINE-D0081546A

PATIENT
  Sex: Female

DRUGS (2)
  1. AVAMYS [Suspect]
     Route: 045
     Dates: start: 201310
  2. ANTIHYPERTENSIVE [Concomitant]
     Indication: HYPERTENSION
     Route: 065

REACTIONS (16)
  - Contusion [Unknown]
  - Swelling face [Unknown]
  - Epistaxis [Unknown]
  - Nasal cavity mass [Unknown]
  - Abnormal sensation in eye [Unknown]
  - Excoriation [Unknown]
  - Haematoma [Unknown]
  - Emotional distress [Unknown]
  - Impaired work ability [Unknown]
  - Eyelid oedema [Unknown]
  - Periorbital haematoma [Unknown]
  - Hypersensitivity [Unknown]
  - Loss of consciousness [Recovered/Resolved]
  - Hypotonia [Recovered/Resolved]
  - Amnesia [Recovered/Resolved]
  - Fall [Recovered/Resolved]
